FAERS Safety Report 25680017 (Version 1)
Quarter: 2025Q3

REPORT INFORMATION
  Report Type: Other
  Country: EU (occurrence: EU)
  Receive Date: 20250814
  Receipt Date: 20250814
  Transmission Date: 20251021
  Serious: Yes (Life-Threatening)
  Sender: ZYDUS PHARM
  Company Number: None

PATIENT

DRUGS (5)
  1. BISOPROLOL [Suspect]
     Active Substance: BISOPROLOL
     Indication: Poisoning deliberate
     Route: 048
     Dates: start: 20250623, end: 20250623
  2. BROMAZEPAM [Suspect]
     Active Substance: BROMAZEPAM
     Indication: Poisoning deliberate
     Route: 048
     Dates: start: 20250623, end: 20250623
  3. VALSARTAN [Suspect]
     Active Substance: VALSARTAN
     Indication: Poisoning deliberate
     Route: 048
     Dates: start: 20250623, end: 20250623
  4. POTASSIUM CHLORIDE [Suspect]
     Active Substance: POTASSIUM CHLORIDE
     Indication: Poisoning deliberate
     Route: 048
     Dates: start: 20250623, end: 20250623
  5. KARDEGIC [Suspect]
     Active Substance: ASPIRIN DL-LYSINE
     Indication: Poisoning deliberate
     Route: 048
     Dates: start: 20250623, end: 20250623

REACTIONS (4)
  - Acute kidney injury [Recovered/Resolved]
  - Hyperkalaemia [Recovered/Resolved]
  - Metabolic acidosis [Recovered/Resolved]
  - Poisoning deliberate [Recovered/Resolved]

NARRATIVE: CASE EVENT DATE: 20250623
